FAERS Safety Report 23587339 (Version 1)
Quarter: 2024Q1

REPORT INFORMATION
  Report Type: Spontaneous
  Country: CN (occurrence: CN)
  Receive Date: 20240301
  Receipt Date: 20240301
  Transmission Date: 20240410
  Serious: Yes (Other)
  Sender: FDA-Public Use
  Company Number: CN-PFIZER INC-PV202400028986

PATIENT
  Age: 63 Year
  Sex: Female

DRUGS (1)
  1. CRIZOTINIB [Suspect]
     Active Substance: CRIZOTINIB
     Indication: Lung carcinoma cell type unspecified recurrent
     Dosage: 600 MG, 1X/DAY
     Route: 048
     Dates: start: 20220527, end: 20240205

REACTIONS (2)
  - Renal necrosis [Unknown]
  - Renal cyst [Recovering/Resolving]

NARRATIVE: CASE EVENT DATE: 20240205
